FAERS Safety Report 24982241 (Version 1)
Quarter: 2025Q1

REPORT INFORMATION
  Report Type: Spontaneous
  Country: US (occurrence: None)
  Receive Date: 20250216
  Receipt Date: 20250216
  Transmission Date: 20250408
  Serious: Yes (Hospitalization, Disabling, Other)
  Sender: FDA-CTU
  Company Number: None

PATIENT
  Sex: Female
  Weight: 56.25 kg

DRUGS (13)
  1. KEYTRUDA [Suspect]
     Active Substance: PEMBROLIZUMAB
     Indication: Non-small cell lung cancer
     Dates: start: 20240130, end: 20240701
  2. METFORMIN [Concomitant]
     Active Substance: METFORMIN HYDROCHLORIDE
  3. BRILINTA [Concomitant]
     Active Substance: TICAGRELOR
  4. METOPROLOL [Concomitant]
     Active Substance: METOPROLOL
  5. AMLODIPINE [Concomitant]
     Active Substance: AMLODIPINE BESYLATE
  6. arorvastin [Concomitant]
  7. DONEPEZIL [Concomitant]
     Active Substance: DONEPEZIL
  8. ezetemide [Concomitant]
  9. TRAZODONE [Concomitant]
     Active Substance: TRAZODONE HYDROCHLORIDE
  10. FLUTICASONE [Concomitant]
     Active Substance: FLUTICASONE
  11. STIOLTO RESPIMAT [Concomitant]
     Active Substance: OLODATEROL HYDROCHLORIDE\TIOTROPIUM BROMIDE MONOHYDRATE
  12. VITAMIN D3 [Concomitant]
     Active Substance: CHOLECALCIFEROL
  13. LUTEIN [Concomitant]
     Active Substance: LUTEIN

REACTIONS (5)
  - Amnesia [None]
  - Asthenia [None]
  - Urinary tract infection [None]
  - Extradural haematoma [None]
  - Fall [None]
